FAERS Safety Report 9051143 (Version 7)
Quarter: 2013Q3

REPORT INFORMATION
  Report Type: Spontaneous
  Country: US (occurrence: US)
  Receive Date: 20130206
  Receipt Date: 20130909
  Transmission Date: 20140515
  Serious: Yes (Other)
  Sender: FDA-Public Use
  Company Number: US-PFIZER INC-2013045519

PATIENT
  Age: 56 Year
  Sex: Male
  Weight: 93 kg

DRUGS (7)
  1. SUTENT [Suspect]
     Indication: RENAL CELL CARCINOMA
     Dosage: 50 MG, CYCLIC (DAILY 4 WEEKS ON 2 WEEKS OFF)
     Dates: start: 20130116, end: 20130903
  2. SUTENT [Suspect]
     Indication: RENAL CANCER
  3. METOPROLOL [Concomitant]
     Indication: CARDIAC DISORDER
     Dosage: 50 MG, 1X/DAY
  4. DAYQUIL [Concomitant]
     Dosage: UNK
  5. NYQUIL [Concomitant]
     Dosage: UNK
  6. OXYCODONE [Concomitant]
     Dosage: UNK
  7. MS-CONTIN [Concomitant]
     Dosage: UNK

REACTIONS (21)
  - Rib fracture [Unknown]
  - Back pain [Unknown]
  - Abnormal dreams [Not Recovered/Not Resolved]
  - Nightmare [Not Recovered/Not Resolved]
  - Skin disorder [Unknown]
  - Pain [Unknown]
  - Influenza [Unknown]
  - Disease progression [Unknown]
  - Renal cancer [Unknown]
  - Dysgeusia [Not Recovered/Not Resolved]
  - Fatigue [Not Recovered/Not Resolved]
  - Decreased appetite [Not Recovered/Not Resolved]
  - Diarrhoea [Unknown]
  - Stomatitis [Unknown]
  - Epistaxis [Unknown]
  - Nausea [Unknown]
  - Vomiting [Unknown]
  - Hair colour changes [Unknown]
  - Cough [Unknown]
  - Anaemia [Unknown]
  - Red blood cell abnormality [Unknown]
